FAERS Safety Report 12210934 (Version 5)
Quarter: 2017Q1

REPORT INFORMATION
  Report Type: Report from Study
  Country: FR (occurrence: FR)
  Receive Date: 20160325
  Receipt Date: 20170310
  Transmission Date: 20170428
  Serious: Yes (Life-Threatening, Hospitalization)
  Sender: FDA-Public Use
  Company Number: PHHO2016FR001058

PATIENT
  Age: 67 Year
  Sex: Male
  Weight: 78 kg

DRUGS (3)
  1. TRAMETINIB [Suspect]
     Active Substance: TRAMETINIB
     Indication: MALIGNANT MELANOMA
     Dosage: 2 MG, QD
     Route: 048
     Dates: start: 20150424, end: 20160114
  2. DABRAFENIB [Suspect]
     Active Substance: DABRAFENIB
     Indication: MALIGNANT MELANOMA
     Dosage: 150 MG, BID
     Route: 048
     Dates: start: 20141003, end: 20160114
  3. DABRAFENIB [Suspect]
     Active Substance: DABRAFENIB
     Indication: CEREBRAL DISORDER

REACTIONS (3)
  - Atrial fibrillation [Recovered/Resolved]
  - Left ventricular dysfunction [Recovering/Resolving]
  - Lung disorder [Recovered/Resolved]

NARRATIVE: CASE EVENT DATE: 20160102
